FAERS Safety Report 17102749 (Version 11)
Quarter: 2020Q3

REPORT INFORMATION
  Report Type: Report from Study
  Country: DE (occurrence: DE)
  Receive Date: 20191203
  Receipt Date: 20200723
  Transmission Date: 20201102
  Serious: Yes (Hospitalization, Other)
  Sender: FDA-Public Use
  Company Number: DE-PFIZER INC-2019519803

PATIENT
  Age: 71 Year
  Sex: Female
  Weight: 65 kg

DRUGS (11)
  1. AMLODIPINE [Concomitant]
     Active Substance: AMLODIPINE BESYLATE
     Dosage: UNK
  2. RAMIPRIL. [Suspect]
     Active Substance: RAMIPRIL
     Indication: HYPERTENSION
     Dosage: 5 MG, BID
     Route: 065
     Dates: start: 20191015
  3. RAMIPRIL. [Suspect]
     Active Substance: RAMIPRIL
     Dosage: 5 MG, QD
     Route: 065
     Dates: start: 20200324
  4. KISQALI [Suspect]
     Active Substance: RIBOCICLIB
     Indication: BREAST CANCER METASTATIC
     Dosage: 600 MG, QD (1 WEEK 2 DAYS)
     Route: 048
     Dates: start: 20190731, end: 20190808
  5. BISOPROLOL FUMARATE. [Suspect]
     Active Substance: BISOPROLOL FUMARATE
     Indication: BREAST CANCER METASTATIC
     Dosage: 5 MG, QD
     Route: 065
     Dates: start: 2012
  6. BISOPROLOL FUMARATE. [Suspect]
     Active Substance: BISOPROLOL FUMARATE
     Dosage: 4.24 MG, QD
     Route: 065
     Dates: start: 20191015
  7. RAMIPRIL. [Suspect]
     Active Substance: RAMIPRIL
     Indication: HYPERTENSIVE CRISIS
     Dosage: 5 MG, QD
     Route: 065
     Dates: start: 2012
  8. LETROZOLE. [Suspect]
     Active Substance: LETROZOLE
     Indication: BREAST CANCER METASTATIC
     Dosage: 2.5 MG, QD
     Route: 048
     Dates: start: 20190731
  9. L?THYROXINE [LEVOTHYROXINE] [Concomitant]
     Active Substance: LEVOTHYROXINE
     Dosage: 125 MG, QD
  10. KISQALI [Suspect]
     Active Substance: RIBOCICLIB
     Indication: BREAST CANCER METASTATIC
     Dosage: 400 MG, QD
     Route: 048
     Dates: start: 20190822
  11. KISQALI [Suspect]
     Active Substance: RIBOCICLIB
     Dosage: 400 MG, QD
     Route: 048
     Dates: start: 20200506

REACTIONS (21)
  - Nausea [Recovered/Resolved]
  - Diastolic dysfunction [Recovered/Resolved]
  - Fatigue [Not Recovered/Not Resolved]
  - Pyrexia [Recovered/Resolved]
  - Diarrhoea [Recovered/Resolved]
  - Sinus arrhythmia [Unknown]
  - Cardiac valve sclerosis [Recovering/Resolving]
  - Tachycardia [Recovered/Resolved]
  - Rash [Recovered/Resolved]
  - Intervertebral disc protrusion [Recovered/Resolved]
  - Rotavirus infection [Recovered/Resolved]
  - Blood pressure increased [Not Recovered/Not Resolved]
  - Atrial fibrillation [Recovered/Resolved]
  - Mitral valve incompetence [Recovering/Resolving]
  - International normalised ratio decreased [Recovered/Resolved]
  - Supraventricular tachyarrhythmia [Unknown]
  - Vomiting [Recovered/Resolved]
  - Acute kidney injury [Not Recovered/Not Resolved]
  - Tricuspid valve incompetence [Recovering/Resolving]
  - Hypertensive crisis [Recovering/Resolving]
  - Atrioventricular block first degree [Unknown]

NARRATIVE: CASE EVENT DATE: 20190809
